FAERS Safety Report 13366835 (Version 1)
Quarter: 2017Q1

REPORT INFORMATION
  Report Type: Spontaneous
  Country: AT (occurrence: AT)
  Receive Date: 20170324
  Receipt Date: 20170324
  Transmission Date: 20170429
  Serious: Yes (Hospitalization)
  Sender: FDA-Public Use
  Company Number: AT-TEVA-751193ISR

PATIENT
  Age: 76 Year
  Sex: Female
  Weight: 73.2 kg

DRUGS (16)
  1. SERTRALINE [Suspect]
     Active Substance: SERTRALINE HYDROCHLORIDE
     Route: 048
     Dates: start: 20150214
  2. XARELTO [Concomitant]
     Active Substance: RIVAROXABAN
     Route: 048
  3. SEROQUEL [Suspect]
     Active Substance: QUETIAPINE FUMARATE
     Route: 048
     Dates: start: 20150120, end: 20150126
  4. ZOLDEM [Concomitant]
     Active Substance: ZOLPIDEM TARTRATE
     Dates: start: 20150122, end: 20150201
  5. DOMINAL (PROTHIPENDYL HYDROCHLORIDE) [Suspect]
     Active Substance: PROTHIPENDYL HYDROCHLORIDE
     Route: 048
     Dates: start: 201412, end: 20150201
  6. RAMIPRIL. [Concomitant]
     Active Substance: RAMIPRIL
     Route: 048
  7. PANTOPRAZOLE SODIUM SESQUIHYDRATE [Concomitant]
     Active Substance: PANTOPRAZOLE SODIUM
     Dosage: 20-40MG
     Route: 048
  8. LANITOP [Concomitant]
     Active Substance: METILDIGOXIN
     Route: 048
  9. OLEOVIT [Concomitant]
     Route: 048
  10. SERTRALINE [Suspect]
     Active Substance: SERTRALINE HYDROCHLORIDE
     Route: 048
     Dates: start: 201412, end: 20141230
  11. SEROQUEL [Suspect]
     Active Substance: QUETIAPINE FUMARATE
     Dosage: 25-250MG
     Route: 048
     Dates: start: 20150115, end: 20150119
  12. SEROQUEL [Suspect]
     Active Substance: QUETIAPINE FUMARATE
     Route: 048
     Dates: start: 20150127, end: 20150201
  13. SEROQUEL [Suspect]
     Active Substance: QUETIAPINE FUMARATE
     Route: 048
  14. SIMVASTATIN. [Concomitant]
     Active Substance: SIMVASTATIN
     Route: 048
  15. SERTRALINE [Suspect]
     Active Substance: SERTRALINE HYDROCHLORIDE
     Route: 048
     Dates: start: 20141231, end: 20150213
  16. CONCOR COR [Concomitant]
     Active Substance: BISOPROLOL FUMARATE
     Route: 048

REACTIONS (1)
  - Delirium [Recovered/Resolved]

NARRATIVE: CASE EVENT DATE: 20150128
